FAERS Safety Report 15402787 (Version 1)
Quarter: 2018Q3

REPORT INFORMATION
  Report Type: Spontaneous
  Country: US (occurrence: US)
  Receive Date: 20180917
  Receipt Date: 20180917
  Transmission Date: 20181010
  Serious: No
  Sender: FDA-Public Use
  Company Number: None

PATIENT
  Age: 33 Year
  Sex: Female
  Weight: 45.45 kg

DRUGS (1)
  1. DOXYCYCLINE MONO [Suspect]
     Active Substance: DOXYCYCLINE
     Indication: SKIN INFECTION
     Dosage: ?          QUANTITY:1 CAPSULE(S);?
     Route: 048
     Dates: start: 20180914, end: 20180917

REACTIONS (1)
  - Burning sensation [None]

NARRATIVE: CASE EVENT DATE: 20180915
